FAERS Safety Report 5027660-9 (Version None)
Quarter: 2006Q2

REPORT INFORMATION
  Report Type: 
  Country: None (occurrence: None)
  Receive Date: 20060616
  Receipt Date: 20060607
  Transmission Date: 20061013
  Serious: Yes (Hospitalization, Other)
  Sender: FDA-Public Use
  Company Number: US-JNJFOC-20060304006

PATIENT
  Sex: Male
  Weight: 108.86 kg

DRUGS (15)
  1. RISPERIDONE CONSTA [Suspect]
     Indication: SCHIZOPHRENIA
     Route: 030
  2. ATIVAN [Concomitant]
     Route: 048
  3. ATIVAN [Concomitant]
     Indication: ANXIETY
     Route: 048
  4. ENALAPRIL [Concomitant]
     Indication: HYPERTENSION
     Route: 048
  5. FLUNISOLIDE [Concomitant]
     Indication: RHINITIS
     Route: 045
  6. OXYCODONE HCL [Concomitant]
     Indication: PAIN
     Route: 048
  7. TRAZODONE HCL [Concomitant]
     Indication: INSOMNIA
     Route: 048
  8. ALBUTEROL [Concomitant]
     Indication: DYSPNOEA
  9. ZOLOFT [Concomitant]
     Indication: DEPRESSION
     Route: 048
  10. NEOMYCIN [Concomitant]
     Indication: EYE INFECTION
  11. ALUMINUM ACETATE [Concomitant]
     Indication: WOUND TREATMENT
  12. ATENOLOL [Concomitant]
     Indication: HYPERTENSION
     Route: 048
  13. VARDENAFIL [Concomitant]
     Route: 048
  14. LORATADINE [Concomitant]
     Indication: HYPERSENSITIVITY
     Route: 048
  15. RISPERIDONE [Concomitant]
     Indication: SCHIZOPHRENIA
     Route: 048

REACTIONS (2)
  - RESPIRATORY FAILURE [None]
  - SCHIZOPHRENIA [None]
